FAERS Safety Report 20027680 (Version 1)
Quarter: 2021Q4

REPORT INFORMATION
  Report Type: Spontaneous
  Country: US (occurrence: US)
  Receive Date: 20211103
  Receipt Date: 20211103
  Transmission Date: 20220303
  Serious: No
  Sender: FDA-Public Use
  Company Number: US-drreddys-SPO/USA/21/0143243

PATIENT
  Age: 46 Year
  Sex: Female

DRUGS (1)
  1. FEXOFENADINE HCL [Suspect]
     Active Substance: FEXOFENADINE HYDROCHLORIDE
     Indication: Seasonal allergy
     Dates: start: 20211020

REACTIONS (6)
  - Erythema [Unknown]
  - Anal pruritus [Unknown]
  - Flushing [Unknown]
  - Pruritus [Unknown]
  - Drug ineffective [Unknown]
  - Product quality issue [Unknown]
